FAERS Safety Report 16853995 (Version 1)
Quarter: 2019Q3

REPORT INFORMATION
  Report Type: Spontaneous
  Country: US (occurrence: US)
  Receive Date: 20190926
  Receipt Date: 20190926
  Transmission Date: 20191005
  Serious: No
  Sender: FDA-Public Use
  Company Number: US-BIOGEN-2019BI00758200

PATIENT
  Age: 26 Year
  Sex: Female

DRUGS (4)
  1. TECFIDERA [Suspect]
     Active Substance: DIMETHYL FUMARATE
     Route: 065
     Dates: start: 20190626
  2. TECFIDERA [Suspect]
     Active Substance: DIMETHYL FUMARATE
     Indication: MULTIPLE SCLEROSIS
     Dosage: STARTING DOSE
     Route: 048
     Dates: start: 20190628
  3. TECFIDERA [Suspect]
     Active Substance: DIMETHYL FUMARATE
     Dosage: MAINTENANCE DOSE
     Route: 065
     Dates: start: 20190718
  4. TECFIDERA [Suspect]
     Active Substance: DIMETHYL FUMARATE
     Dosage: MAINTENANCE DOSE
     Route: 065
     Dates: start: 201906

REACTIONS (2)
  - Product dose omission [Unknown]
  - Flushing [Unknown]

NARRATIVE: CASE EVENT DATE: 20190628
